FAERS Safety Report 8854651 (Version 1)
Quarter: 2012Q4

REPORT INFORMATION
  Report Type: 
  Country: CN (occurrence: CN)
  Receive Date: 20121023
  Receipt Date: 20121023
  Transmission Date: 20130627
  Serious: Yes (Other)
  Sender: FDA-Public Use
  Company Number: CN-BAYER-2012-110818

PATIENT
  Age: 44 Year
  Sex: Male
  Weight: 65 kg

DRUGS (3)
  1. MOXIFLOXACIN ORAL [Suspect]
     Indication: INFECTION
     Dosage: 0.4 g, QD
     Route: 048
     Dates: start: 20110118, end: 20110120
  2. PHENOBARBITAL SODIUM [Suspect]
     Indication: RETINAL OPERATION
     Dosage: UNK
     Dates: start: 20110118
  3. CEFAMANDOLE NAFATE [Suspect]
     Indication: RETINAL OPERATION
     Dosage: 29 g, BID
     Route: 042
     Dates: start: 20110118

REACTIONS (2)
  - Rash [Recovering/Resolving]
  - Dermatitis exfoliative [Recovered/Resolved]
